FAERS Safety Report 23528616 (Version 1)
Quarter: 2024Q1

REPORT INFORMATION
  Report Type: Spontaneous
  Country: US (occurrence: US)
  Receive Date: 20240215
  Receipt Date: 20240215
  Transmission Date: 20240410
  Serious: No
  Sender: FDA-Public Use
  Company Number: US-LUNDBECK-DKLU3072938

PATIENT
  Age: 70 Year
  Sex: Female

DRUGS (1)
  1. VYEPTI [Suspect]
     Active Substance: EPTINEZUMAB-JJMR
     Indication: Product used for unknown indication
     Route: 041

REACTIONS (5)
  - Panic attack [Unknown]
  - Dysphemia [Unknown]
  - Feeling abnormal [Unknown]
  - Migraine [Unknown]
  - Drug ineffective [Unknown]
